FAERS Safety Report 13659239 (Version 4)
Quarter: 2017Q4

REPORT INFORMATION
  Report Type: Report from Study
  Country: FR (occurrence: FR)
  Receive Date: 20170616
  Receipt Date: 20171213
  Transmission Date: 20180320
  Serious: Yes (Death, Hospitalization)
  Sender: FDA-Public Use
  Company Number: FR-JNJFOC-20170612320

PATIENT
  Age: 76 Year
  Sex: Male
  Weight: 76 kg

DRUGS (7)
  1. IBRUTINIB [Suspect]
     Active Substance: IBRUTINIB
     Indication: MANTLE CELL LYMPHOMA
     Route: 048
     Dates: start: 20161012, end: 20161130
  2. IBRUTINIB [Suspect]
     Active Substance: IBRUTINIB
     Indication: MANTLE CELL LYMPHOMA
     Route: 048
     Dates: start: 20160928, end: 20160928
  3. ZYDELIG [Suspect]
     Active Substance: IDELALISIB
     Indication: MANTLE CELL LYMPHOMA
     Route: 048
     Dates: start: 20150918, end: 20160920
  4. IBRUTINIB [Suspect]
     Active Substance: IBRUTINIB
     Indication: MANTLE CELL LYMPHOMA
     Route: 048
  5. ZYDELIG [Suspect]
     Active Substance: IDELALISIB
     Indication: MANTLE CELL LYMPHOMA
     Route: 048
  6. IBRUTINIB [Suspect]
     Active Substance: IBRUTINIB
     Indication: MANTLE CELL LYMPHOMA
     Route: 048
     Dates: start: 20150409, end: 20150828
  7. IBRUTINIB [Suspect]
     Active Substance: IBRUTINIB
     Indication: MANTLE CELL LYMPHOMA
     Route: 048
     Dates: start: 20161225, end: 20170312

REACTIONS (2)
  - Arrhythmia supraventricular [Fatal]
  - General physical health deterioration [Not Recovered/Not Resolved]

NARRATIVE: CASE EVENT DATE: 20170222
